FAERS Safety Report 7764764-1 (Version None)
Quarter: 2011Q3

REPORT INFORMATION
  Report Type: 
  Country: None (occurrence: None)
  Receive Date: 20110921
  Receipt Date: 20110921
  Transmission Date: 20111222
  Serious: Yes (Other)
  Sender: FDA-Public Use
  Company Number: None

PATIENT
  Sex: Female
  Weight: 54.431 kg

DRUGS (1)
  1. HYDROCODONE BITARTRATE AND ACETAMINOPHEN [Suspect]
     Indication: PAIN
     Dosage: 1 OR 2
     Route: 048
     Dates: start: 20110822, end: 20110823

REACTIONS (4)
  - SCRATCH [None]
  - PRODUCT SUBSTITUTION ISSUE [None]
  - PRURITUS [None]
  - EXCORIATION [None]
